FAERS Safety Report 25093617 (Version 1)
Quarter: 2025Q1

REPORT INFORMATION
  Report Type: Other
  Country: GB (occurrence: GB)
  Receive Date: 20250319
  Receipt Date: 20250319
  Transmission Date: 20250409
  Serious: Yes (Disabling, Other)
  Sender: MACLEODS
  Company Number: None

PATIENT

DRUGS (1)
  1. ESCITALOPRAM [Suspect]
     Active Substance: ESCITALOPRAM OXALATE
     Indication: Social anxiety disorder
     Route: 065

REACTIONS (6)
  - Anhedonia [Not Recovered/Not Resolved]
  - Medication error [Unknown]
  - Sexual dysfunction [Unknown]
  - Flat affect [Unknown]
  - Hormone level abnormal [Unknown]
  - Autonomic nervous system imbalance [Unknown]
